FAERS Safety Report 25221011 (Version 1)
Quarter: 2025Q2

REPORT INFORMATION
  Report Type: Spontaneous
  Country: US (occurrence: None)
  Receive Date: 20250419
  Receipt Date: 20250419
  Transmission Date: 20250716
  Serious: Yes (Disabling)
  Sender: FDA-CTU
  Company Number: None

PATIENT
  Age: 62 Year
  Sex: Female
  Weight: 126.45 kg

DRUGS (17)
  1. MONISTAT 1 COMBINATION PACK [Suspect]
     Active Substance: MICONAZOLE NITRATE
     Indication: Fungal infection
     Dosage: 1 OVULE AT BEDTIME VAGINAL
     Route: 067
     Dates: start: 20250411, end: 20250412
  2. CLONAZEPAM [Concomitant]
     Active Substance: CLONAZEPAM
  3. Metaprolol ER [Concomitant]
  4. PROTONIX [Concomitant]
     Active Substance: PANTOPRAZOLE SODIUM
  5. VALACYCLOVIR [Concomitant]
     Active Substance: VALACYCLOVIR HYDROCHLORIDE
  6. PREDNISOLONE [Concomitant]
     Active Substance: PREDNISOLONE
  7. LEXAPRO [Concomitant]
     Active Substance: ESCITALOPRAM OXALATE
  8. VITAMIN D3 [Concomitant]
     Active Substance: CHOLECALCIFEROL
  9. FISH OIL [Concomitant]
     Active Substance: FISH OIL
  10. MINERALS\VITAMINS [Concomitant]
     Active Substance: MINERALS\VITAMINS
  11. VITAMIN C [Concomitant]
     Active Substance: ASCORBIC ACID
  12. POTASSIUM [Concomitant]
     Active Substance: POTASSIUM
  13. IRON [Concomitant]
     Active Substance: IRON
  14. MAGNESIUM GLYCINATE [Concomitant]
     Active Substance: MAGNESIUM GLYCINATE
  15. B12 [Concomitant]
  16. CALCIUM [Concomitant]
     Active Substance: CALCIUM
  17. CANNABIDIOL [Concomitant]
     Active Substance: CANNABIDIOL

REACTIONS (2)
  - Chemical burn of genitalia [None]
  - Drug ineffective [None]

NARRATIVE: CASE EVENT DATE: 20250411
